FAERS Safety Report 10407635 (Version 1)
Quarter: 2014Q3

REPORT INFORMATION
  Report Type: Spontaneous
  Country: FR (occurrence: FR)
  Receive Date: 20140825
  Receipt Date: 20140825
  Transmission Date: 20150326
  Serious: Yes (Hospitalization)
  Sender: FDA-Public Use
  Company Number: PHHY2014FR105058

PATIENT
  Age: 66 Year
  Sex: Female

DRUGS (15)
  1. TEGRETOL [Suspect]
     Active Substance: CARBAMAZEPINE
     Dosage: 400 MG, BID
     Route: 048
  2. METFORMINE [Concomitant]
     Active Substance: METFORMIN HYDROCHLORIDE
     Dosage: UNK UKN, UNK
  3. BETAHISTINE [Suspect]
     Active Substance: BETAHISTINE
     Dosage: 1 DF, BID
     Route: 048
     Dates: end: 20130827
  4. SPIRONOLACTONE BIOGARAN [Suspect]
     Active Substance: SPIRONOLACTONE
     Indication: HYPERTENSION
     Dosage: 1 DF, QD (50 MG)
     Route: 048
     Dates: end: 20130827
  5. CORGARD [Concomitant]
     Active Substance: NADOLOL
     Indication: HYPERTENSION
     Dosage: 80 MG, UNK
  6. MODURETIC 5-50 [Suspect]
     Active Substance: AMILORIDE HYDROCHLORIDE\HYDROCHLOROTHIAZIDE
     Dosage: 1 DF, UNK
     Route: 048
     Dates: start: 20130814, end: 20130827
  7. ZOLPIDEM [Concomitant]
     Active Substance: ZOLPIDEM\ZOLPIDEM TARTRATE
     Dosage: UNK UKN, UNK
  8. LOXEN [Suspect]
     Active Substance: NICARDIPINE HYDROCHLORIDE
     Dosage: 1 DF, BID
     Route: 048
     Dates: start: 20130814, end: 20130827
  9. AXELER [Suspect]
     Active Substance: AMLODIPINE BESYLATE\OLMESARTAN MEDOXOMIL
     Indication: HYPERTENSION
     Dosage: 1 DF, UNK (20 MG, 5 MG)
     Route: 048
     Dates: end: 20130827
  10. THERALENE [Concomitant]
     Active Substance: TRIMEPRAZINE
     Dosage: UNK UKN, UNK (4 %)
  11. ATARAX [Concomitant]
     Active Substance: HYDROXYZINE\HYDROXYZINE HYDROCHLORIDE
     Dosage: 25 MG, UNK
  12. APROVEL [Concomitant]
     Active Substance: IRBESARTAN
     Dosage: UNK UKN, UNK
  13. SERESTA [Suspect]
     Active Substance: OXAZEPAM
     Dosage: 1 DF, QD (10 MG)
     Route: 048
     Dates: end: 20130827
  14. PIRACETAM [Suspect]
     Active Substance: PIRACETAM
     Dosage: 1 DF, BID
     Route: 048
     Dates: start: 20130814, end: 20130827
  15. RILMENIDINE [Concomitant]
     Active Substance: RILMENIDINE
     Indication: HYPERTENSION
     Dosage: UNK UKN, UNK

REACTIONS (3)
  - Somnolence [Recovered/Resolved]
  - Hyponatraemia [Recovered/Resolved]
  - Psychomotor skills impaired [Recovered/Resolved]

NARRATIVE: CASE EVENT DATE: 20130827
